FAERS Safety Report 6031173-5 (Version None)
Quarter: 2008Q4

REPORT INFORMATION
  Report Type: 
  Country: None (occurrence: None)
  Receive Date: 20081224
  Receipt Date: 20080623
  Transmission Date: 20090506
  Serious: Yes (Other)
  Sender: FDA-Public Use
  Company Number: 20080164 /

PATIENT
  Age: 37 Year
  Sex: Female
  Weight: 68.0396 kg

DRUGS (6)
  1. VENOFER [Suspect]
     Indication: IRON DEFICIENCY ANAEMIA
     Dosage: 500MG IV PUSH OVER
     Route: 042
     Dates: start: 20080617
  2. ZEGERID [Concomitant]
  3. CLARITIN [Concomitant]
  4. FOLLISTEM [Concomitant]
  5. REPRONEX [Concomitant]
  6. VENOFER [Suspect]
     Dosage: 15-20 MINS, INTRAVENOUS
     Route: 042

REACTIONS (1)
  - HYPERSENSITIVITY [None]
